FAERS Safety Report 15048275 (Version 2)
Quarter: 2018Q2

REPORT INFORMATION
  Report Type: Spontaneous
  Country: JP (occurrence: JP)
  Receive Date: 20180622
  Receipt Date: 20180627
  Transmission Date: 20180711
  Serious: No
  Sender: FDA-Public Use
  Company Number: JP-ROCHE-2136340

PATIENT
  Age: 45 Year
  Sex: Male
  Weight: 58 kg

DRUGS (6)
  1. XELODA [Suspect]
     Active Substance: CAPECITABINE
     Indication: GASTRIC CANCER
     Route: 048
  2. APREPITANT. [Concomitant]
     Active Substance: APREPITANT
     Dosage: THE SECOND AND THIRD DAY ADMINISTERING ANTITUMOR AGENT
     Route: 048
  3. OXALIPLATIN. [Concomitant]
     Active Substance: OXALIPLATIN
     Indication: GASTRIC CANCER
     Route: 041
  4. PALONOSETRON HYDROCHLORIDE. [Concomitant]
     Active Substance: PALONOSETRON HYDROCHLORIDE
     Dosage: DOSAGE IS UNCERTAIN.
     Route: 042
  5. APREPITANT. [Concomitant]
     Active Substance: APREPITANT
     Dosage: THE FIRST DAY ADMINISTERING ANTITUMOR AGENT
     Route: 048
  6. DEXAMETHASONE. [Concomitant]
     Active Substance: DEXAMETHASONE
     Dosage: THE SECOND AND THIRD DAY ADMINISTERING ANTITUMOR AGENT
     Route: 048

REACTIONS (3)
  - Nausea [Unknown]
  - Neutrophil count decreased [Unknown]
  - Vomiting [Unknown]
